FAERS Safety Report 15683386 (Version 1)
Quarter: 2018Q4

REPORT INFORMATION
  Report Type: Other
  Country: FR (occurrence: FR)
  Receive Date: 20181204
  Receipt Date: 20181204
  Transmission Date: 20190205
  Serious: Yes (Death, Other)
  Sender: FDA-Public Use
  Company Number: FR-ASTELLAS-2018US051555

PATIENT
  Age: 67 Year
  Sex: Male
  Weight: 121 kg

DRUGS (4)
  1. TAZOCILLINE [Suspect]
     Active Substance: PIPERACILLIN SODIUM\TAZOBACTAM SODIUM
     Indication: LUNG DISORDER
     Route: 042
     Dates: start: 20180907, end: 20180914
  2. AMPHOTERICIN B, LIPOSOME [Suspect]
     Active Substance: AMPHOTERICIN B
     Indication: BRONCHOPULMONARY ASPERGILLOSIS
     Route: 042
     Dates: start: 20180831, end: 20180916
  3. MERONEM [Suspect]
     Active Substance: MEROPENEM
     Indication: LUNG DISORDER
     Route: 042
     Dates: start: 20180823, end: 20180910
  4. ISAVUCONAZOLE [Suspect]
     Active Substance: ISAVUCONAZOLE
     Indication: MUCORMYCOSIS
     Route: 042
     Dates: start: 20180903, end: 20180914

REACTIONS (2)
  - Hepatitis cholestatic [Fatal]
  - Condition aggravated [Fatal]

NARRATIVE: CASE EVENT DATE: 20180912
